FAERS Safety Report 19143405 (Version 1)
Quarter: 2021Q2

REPORT INFORMATION
  Report Type: Spontaneous
  Country: US (occurrence: US)
  Receive Date: 20210416
  Receipt Date: 20210416
  Transmission Date: 20210717
  Serious: No
  Sender: FDA-Public Use
  Company Number: US-TARO-2021TAR00042

PATIENT

DRUGS (3)
  1. FLUOROURACIL TOPICAL CREAM USP 5% [Suspect]
     Active Substance: FLUOROURACIL
     Indication: PHOTOSENSITIVITY REACTION
     Dosage: DAILY, THIN LAYER ON SIDE OF NOSE, LIP, CHEST, SHOULDERS
     Route: 061
     Dates: start: 20201229
  2. FLUOROURACIL CREAM [Suspect]
     Active Substance: FLUOROURACIL
     Indication: PRODUCT USED FOR UNKNOWN INDICATION
     Dosage: UNK
     Route: 065
  3. FLUOROURACIL TOPICAL CREAM USP 5% [Suspect]
     Active Substance: FLUOROURACIL
     Indication: PRECANCEROUS CELLS PRESENT

REACTIONS (7)
  - Lip blister [Not Recovered/Not Resolved]
  - Lip swelling [Unknown]
  - Lip pain [Unknown]
  - Expired product administered [Unknown]
  - Vomiting [Recovered/Resolved]
  - Lip erythema [Unknown]
  - Illness [Unknown]

NARRATIVE: CASE EVENT DATE: 202101
